FAERS Safety Report 10089111 (Version 2)
Quarter: 2014Q2

REPORT INFORMATION
  Report Type: Report from Study
  Country: BR (occurrence: BR)
  Receive Date: 20140421
  Receipt Date: 20140523
  Transmission Date: 20141212
  Serious: Yes (Death, Hospitalization, Other)
  Sender: FDA-Public Use
  Company Number: BR-BAYER-2014-053769

PATIENT
  Age: 62 Year
  Sex: Male

DRUGS (7)
  1. NEXAVAR [Suspect]
     Indication: HEPATIC CANCER
     Dosage: 2 DF, BID
     Route: 048
     Dates: start: 20140405, end: 20140408
  2. B COMPLEX [B3,B6,B2,B1 HCL] [Concomitant]
     Indication: PRODUCT USED FOR UNKNOWN INDICATION
     Dosage: 1 DF, QD
     Route: 048
  3. TYLEX [PARACETAMOL] [Concomitant]
     Indication: ABDOMINAL PAIN
     Dosage: 2 DF, QD
     Route: 048
  4. OMEPRAZOLE [Concomitant]
     Indication: PAIN PROPHYLAXIS
     Dosage: 1 DF, OM
     Route: 048
     Dates: start: 20140405
  5. CALCIUM [Concomitant]
     Indication: MINERAL SUPPLEMENTATION
     Dosage: 1 DF, QD
     Route: 048
  6. DOXAZOSIN [Concomitant]
     Indication: DIURETIC THERAPY
     Dosage: 1 DF, BID
     Route: 048
  7. ATENSINA [Concomitant]
     Indication: HYPERTENSION
     Dosage: 1 DF, QD
     Route: 048

REACTIONS (10)
  - Unevaluable event [Not Recovered/Not Resolved]
  - Unevaluable event [Not Recovered/Not Resolved]
  - Unresponsive to stimuli [Not Recovered/Not Resolved]
  - Aphagia [Not Recovered/Not Resolved]
  - Asthenia [Not Recovered/Not Resolved]
  - Unevaluable event [Not Recovered/Not Resolved]
  - Asthenia [Not Recovered/Not Resolved]
  - Hepatic failure [None]
  - Hospitalisation [Not Recovered/Not Resolved]
  - Death [Fatal]
